FAERS Safety Report 5586470-4 (Version None)
Quarter: 2008Q1

REPORT INFORMATION
  Report Type: 
  Country: None (occurrence: None)
  Receive Date: 20080108
  Receipt Date: 20080108
  Transmission Date: 20080703
  Serious: Yes (Other)
  Sender: FDA-Public Use
  Company Number: None

PATIENT
  Age: 65 Year
  Sex: Female
  Weight: 95.2554 kg

DRUGS (2)
  1. INSULIN [Suspect]
     Indication: POSTOPERATIVE CARE
     Dosage: 4 UNITS BEFORE MEALS SQ
     Route: 058
     Dates: start: 20070714, end: 20070727
  2. LANTUS [Suspect]
     Indication: POSTOPERATIVE CARE
     Dosage: AT BEDTIME SQ
     Route: 058
     Dates: start: 20070714, end: 20070727

REACTIONS (7)
  - ABASIA [None]
  - ASTHENIA [None]
  - EATING DISORDER [None]
  - NAUSEA [None]
  - TREMOR [None]
  - VISUAL DISTURBANCE [None]
  - VOMITING [None]
